FAERS Safety Report 23223681 (Version 2)
Quarter: 2024Q1

REPORT INFORMATION
  Report Type: Spontaneous
  Country: PL (occurrence: PL)
  Receive Date: 20231124
  Receipt Date: 20240315
  Transmission Date: 20240410
  Serious: Yes (Death)
  Sender: FDA-Public Use
  Company Number: None

PATIENT
  Age: 67 Year
  Sex: Male
  Weight: 74 kg

DRUGS (27)
  1. TEMOZOLOMIDE [Suspect]
     Active Substance: TEMOZOLOMIDE
     Indication: Product used for unknown indication
     Route: 048
     Dates: start: 20220613, end: 20220630
  2. FLUCONAZOLE [Concomitant]
     Active Substance: FLUCONAZOLE
     Indication: Product used for unknown indication
     Dosage: 2X1 P.O.; USED SINCE 21/06/2023 UNTIL 29/06/2023?IVAX
     Route: 048
  3. TRAMADOL HYDROCHLORIDE [Concomitant]
     Active Substance: TRAMADOL HYDROCHLORIDE
     Indication: Product used for unknown indication
     Dosage: 3X1 TABLET AFTER.
     Route: 048
     Dates: start: 20220630
  4. PLATELETS [Concomitant]
     Active Substance: HUMAN PLATELET, ALLOGENIC
     Indication: Product used for unknown indication
     Route: 042
     Dates: start: 20220704, end: 20220719
  5. ACETAMINOPHEN [Concomitant]
     Active Substance: ACETAMINOPHEN
     Indication: Product used for unknown indication
     Dosage: 3X1 FL I.V.
     Route: 042
     Dates: start: 20220630
  6. FLUCONAZOLE BAXTER [Concomitant]
     Indication: Product used for unknown indication
     Route: 042
     Dates: start: 20220704, end: 20220712
  7. INSULIN HUMAN [Concomitant]
     Active Substance: INSULIN HUMAN
     Indication: Product used for unknown indication
     Route: 058
  8. CALCIUM CHLORIDE\MAGNESIUM CHLORIDE\POTASSIUM CHLORIDE\SODIUM ACETATE\ [Concomitant]
     Active Substance: CALCIUM CHLORIDE\MAGNESIUM CHLORIDE\POTASSIUM CHLORIDE\SODIUM ACETATE\SODIUM CHLORIDE\SODIUM CITRATE
     Indication: Product used for unknown indication
     Route: 042
     Dates: start: 20220630
  9. ROSUVASTATIN [Concomitant]
     Active Substance: ROSUVASTATIN
     Indication: Product used for unknown indication
     Dosage: 0-0-1
     Route: 048
  10. LISINOPRIL [Concomitant]
     Active Substance: LISINOPRIL
     Indication: Product used for unknown indication
     Dosage: 1-0-0
     Route: 048
  11. HYDROXYZINE [Concomitant]
     Active Substance: HYDROXYZINE HYDROCHLORIDE
     Indication: Product used for unknown indication
     Dosage: 10MG-0-25MG
     Route: 048
  12. VANCOMYCIN [Concomitant]
     Active Substance: VANCOMYCIN
     Indication: Product used for unknown indication
     Route: 042
     Dates: start: 20220712, end: 20220719
  13. LAKCID FORTE [Concomitant]
     Indication: Product used for unknown indication
     Dosage: 1X1 P.O.
     Route: 048
     Dates: start: 20220630
  14. TRANEXAMIC ACID [Concomitant]
     Active Substance: TRANEXAMIC ACID
     Indication: Product used for unknown indication
     Dosage: 3X1 AMP I.V.
     Route: 042
     Dates: start: 20220630
  15. HUMAN RED BLOOD CELL [Concomitant]
     Active Substance: HUMAN RED BLOOD CELL
     Indication: Product used for unknown indication
     Route: 042
     Dates: start: 20220709, end: 20220709
  16. Taromentin [Concomitant]
     Indication: Product used for unknown indication
     Route: 042
     Dates: start: 20220704, end: 20220708
  17. OMEPRAZOLE [Concomitant]
     Active Substance: OMEPRAZOLE
     Indication: Product used for unknown indication
     Route: 048
  18. CIPROFLOXACIN [Concomitant]
     Active Substance: CIPROFLOXACIN
     Indication: Product used for unknown indication
     Dosage: 1-0-1 P.O.
     Route: 048
  19. MEROPENEM [Concomitant]
     Active Substance: MEROPENEM
     Indication: Product used for unknown indication
     Route: 042
     Dates: start: 20220709, end: 20220717
  20. BISOPROLOL [Concomitant]
     Active Substance: BISOPROLOL\BISOPROLOL FUMARATE
     Indication: Product used for unknown indication
     Dosage: 1-0-0TABLETS
     Route: 048
  21. UMAN ALBUMIN [Concomitant]
     Indication: Product used for unknown indication
     Dosage: 1X1 I.V.
     Route: 042
     Dates: start: 20220630
  22. TRAZODONE HYDROCHLORIDE [Concomitant]
     Active Substance: TRAZODONE HYDROCHLORIDE
     Indication: Product used for unknown indication
     Dosage: 0-0-2/3 TABLETS,CR
     Route: 048
  23. OMEPRAZOLE [Concomitant]
     Active Substance: OMEPRAZOLE
     Indication: Product used for unknown indication
     Dosage: 2X1 AMP. I.V.
     Route: 042
     Dates: start: 20220630
  24. INSULIN HUMAN [Concomitant]
     Active Substance: INSULIN HUMAN
     Indication: Product used for unknown indication
     Route: 058
  25. ETHAMSYLATE [Concomitant]
     Active Substance: ETHAMSYLATE
     Indication: Product used for unknown indication
     Dosage: 3X2TABLETS AFTER.
     Route: 048
     Dates: start: 20220630
  26. NITRAZEPAM [Concomitant]
     Active Substance: NITRAZEPAM
     Indication: Product used for unknown indication
     Dosage: 0-0-1TABLET
     Route: 048
  27. MEMANTINE HYDROCHLORIDE [Concomitant]
     Active Substance: MEMANTINE HYDROCHLORIDE
     Indication: Product used for unknown indication
     Route: 048

REACTIONS (1)
  - Pancytopenia [Fatal]

NARRATIVE: CASE EVENT DATE: 20220704
